FAERS Safety Report 7530252-0 (Version None)
Quarter: 2011Q2

REPORT INFORMATION
  Report Type: 
  Country: None (occurrence: None)
  Receive Date: 20110607
  Receipt Date: 20110530
  Transmission Date: 20111010
  Serious: Yes (Other)
  Sender: FDA-Public Use
  Company Number: FR-JNJFOC-20110512780

PATIENT
  Sex: Female

DRUGS (1)
  1. RISPERDAL CONSTA [Suspect]
     Indication: ACCIDENTAL EXPOSURE
     Route: 030

REACTIONS (3)
  - EXPOSURE TO CONTAMINATED DEVICE [None]
  - INJURY ASSOCIATED WITH DEVICE [None]
  - DEVICE MALFUNCTION [None]
